FAERS Safety Report 5779788-3 (Version None)
Quarter: 2008Q2

REPORT INFORMATION
  Report Type: 
  Country: None (occurrence: None)
  Receive Date: 20080618
  Receipt Date: 20080602
  Transmission Date: 20081010
  Serious: Yes (Hospitalization)
  Sender: FDA-Public Use
  Company Number: 2008S1000889

PATIENT
  Age: 59 Year
  Sex: Female

DRUGS (4)
  1. MELOXICAM [Suspect]
     Indication: OSTEOARTHRITIS
     Dosage: 15 MG; DAILY; ORAL
     Route: 048
     Dates: start: 19970101, end: 20071218
  2. AMLODIPINE [Concomitant]
  3. RAMIPRIL [Concomitant]
  4. TEMAZEPAM [Concomitant]

REACTIONS (6)
  - ABDOMINAL PAIN UPPER [None]
  - CANDIDIASIS [None]
  - GASTROINTESTINAL HAEMORRHAGE [None]
  - HAEMATEMESIS [None]
  - MELAENA [None]
  - WEIGHT DECREASED [None]
